FAERS Safety Report 10211065 (Version 1)
Quarter: 2014Q2

REPORT INFORMATION
  Report Type: Spontaneous
  Country: US (occurrence: US)
  Receive Date: 20140602
  Receipt Date: 20140602
  Transmission Date: 20141212
  Serious: Yes (Hospitalization)
  Sender: FDA-Public Use
  Company Number: PHHY2014US066333

PATIENT
  Age: 7 Year
  Sex: Male

DRUGS (3)
  1. CICLOSPORIN [Suspect]
     Indication: IMMUNOSUPPRESSION
  2. MYCOPHENOLATE [Suspect]
     Indication: IMMUNOSUPPRESSION
  3. TACROLIMUS [Suspect]
     Indication: IMMUNOSUPPRESSION

REACTIONS (13)
  - Acute disseminated encephalomyelitis [Recovering/Resolving]
  - Muscular weakness [Recovering/Resolving]
  - Urinary retention [Recovering/Resolving]
  - Depressed level of consciousness [Recovering/Resolving]
  - Gait disturbance [Recovering/Resolving]
  - Urinary incontinence [Recovering/Resolving]
  - Irritability [Recovering/Resolving]
  - Hypoaesthesia [Recovering/Resolving]
  - Dysaesthesia [Recovering/Resolving]
  - Hyperreflexia [Recovering/Resolving]
  - Viral titre increased [Recovering/Resolving]
  - Mycoplasma test positive [Recovering/Resolving]
  - Central nervous system lesion [Recovering/Resolving]
